FAERS Safety Report 15355170 (Version 2)
Quarter: 2019Q2

REPORT INFORMATION
  Report Type: Spontaneous
  Country: US (occurrence: US)
  Receive Date: 20180906
  Receipt Date: 20190429
  Transmission Date: 20190711
  Serious: No
  Sender: FDA-Public Use
  Company Number: US-PFIZER INC-2018358758

PATIENT
  Age: 83 Year
  Sex: Female
  Weight: 77 kg

DRUGS (1)
  1. IBRANCE [Suspect]
     Active Substance: PALBOCICLIB
     Indication: BREAST CANCER FEMALE
     Dosage: 125 MG, CYCLIC [D1-D21, EVERY 28 D]
     Route: 048
     Dates: start: 20180711

REACTIONS (6)
  - Eyelid ptosis [Unknown]
  - Constipation [Unknown]
  - Eyelid margin crusting [Unknown]
  - Erythema of eyelid [Unknown]
  - Conjunctivitis [Unknown]
  - Eye pain [Unknown]
